FAERS Safety Report 5744292-5 (Version None)
Quarter: 2008Q2

REPORT INFORMATION
  Report Type: 
  Country: None (occurrence: None)
  Receive Date: 20080516
  Receipt Date: 20080516
  Transmission Date: 20081010
  Serious: Yes (Life-Threatening, Other)
  Sender: FDA-Public Use
  Company Number: None

PATIENT
  Age: 83 Year
  Sex: Female
  Weight: 74.8435 kg

DRUGS (1)
  1. NITROFURANTOIN [Suspect]
     Indication: BLOOD URINE PRESENT
     Dosage: 1 TWICE/DAY PO
     Route: 048
     Dates: start: 20080513, end: 20080514

REACTIONS (10)
  - CHEST PAIN [None]
  - DIZZINESS [None]
  - HYPERHIDROSIS [None]
  - INFLUENZA LIKE ILLNESS [None]
  - MACULAR DEGENERATION [None]
  - NAUSEA [None]
  - PAIN [None]
  - PERIPHERAL COLDNESS [None]
  - PHOTOPSIA [None]
  - PYREXIA [None]
